FAERS Safety Report 20807487 (Version 2)
Quarter: 2025Q2

REPORT INFORMATION
  Report Type: Spontaneous
  Country: CA (occurrence: None)
  Receive Date: 20220510
  Receipt Date: 20250602
  Transmission Date: 20250717
  Serious: Yes (Other)
  Sender: ORION
  Company Number: CA-PFIZER INC-202200652456

PATIENT
  Age: 57 Year
  Sex: Female

DRUGS (1)
  1. METHOTREXATE [Suspect]
     Active Substance: METHOTREXATE
     Indication: Rheumatoid arthritis
     Dates: start: 2014, end: 2018

REACTIONS (1)
  - Crohn^s disease [Unknown]

NARRATIVE: CASE EVENT DATE: 20170101
